FAERS Safety Report 8443759-9 (Version None)
Quarter: 2012Q2

REPORT INFORMATION
  Report Type: 
  Country: None (occurrence: None)
  Receive Date: 20120618
  Receipt Date: 20120605
  Transmission Date: 20120825
  Serious: Yes (Other)
  Sender: FDA-Public Use
  Company Number: US-SANOFI-AVENTIS-2012SA040545

PATIENT
  Sex: Female

DRUGS (1)
  1. LANTUS [Suspect]
     Dosage: DOSE:32 UNIT(S)
     Route: 058

REACTIONS (4)
  - VISUAL IMPAIRMENT [None]
  - LEARNING DISABILITY [None]
  - MEMORY IMPAIRMENT [None]
  - DEMENTIA [None]
